FAERS Safety Report 15198525 (Version 1)
Quarter: 2018Q3

REPORT INFORMATION
  Report Type: Spontaneous
  Country: RU (occurrence: RU)
  Receive Date: 20180725
  Receipt Date: 20180725
  Transmission Date: 20181010
  Serious: Yes (Hospitalization)
  Sender: FDA-Public Use
  Company Number: PHHY2018RU049942

PATIENT
  Age: 66 Year
  Sex: Male
  Weight: 98 kg

DRUGS (4)
  1. EVEROLIMUS. [Suspect]
     Active Substance: EVEROLIMUS
     Indication: RENAL CANCER
     Dosage: 5 MG, QD (1 IN 1 D)
     Route: 048
     Dates: start: 20171113, end: 20180228
  2. LENVATINIB [Suspect]
     Active Substance: LENVATINIB
     Indication: RENAL CANCER
     Dosage: 18 MG OR 14 MG, QD (DAILY) (1 IN 1 D)
     Route: 048
     Dates: start: 20171113, end: 20180228
  3. LENVATINIB [Suspect]
     Active Substance: LENVATINIB
     Dosage: 18 MG OR 14 MG, QD (DAILY) (1 IN 1 D)
     Route: 048
     Dates: start: 20180313
  4. EVEROLIMUS. [Suspect]
     Active Substance: EVEROLIMUS
     Dosage: 5 MG, QD (1 IN 1 D)
     Route: 048
     Dates: start: 20180313

REACTIONS (3)
  - Blood creatinine increased [Recovered/Resolved]
  - Electrolyte imbalance [Recovered/Resolved]
  - General physical health deterioration [Unknown]

NARRATIVE: CASE EVENT DATE: 20180301
